FAERS Safety Report 5447560-X (Version None)
Quarter: 2007Q3

REPORT INFORMATION
  Report Type: 
  Country: None (occurrence: None)
  Receive Date: 20070905
  Receipt Date: 20070905
  Transmission Date: 20080115
  Serious: Yes (Other)
  Sender: FDA-Public Use
  Company Number: None

PATIENT
  Age: 27 Year
  Sex: Female
  Weight: 55.7924 kg

DRUGS (1)
  1. SINGULAIR [Suspect]
     Indication: DYSPNOEA
     Dosage: 10 MG ONCE A DAY PO
     Route: 048
     Dates: start: 20070820, end: 20070829

REACTIONS (3)
  - DEPRESSION [None]
  - FEAR [None]
  - PANIC ATTACK [None]
